FAERS Safety Report 14530535 (Version 2)
Quarter: 2018Q2

REPORT INFORMATION
  Report Type: Report from Study
  Country: AR (occurrence: AR)
  Receive Date: 20180214
  Receipt Date: 20180406
  Transmission Date: 20180711
  Serious: Yes (Other)
  Sender: FDA-Public Use
  Company Number: AR-JNJFOC-20180216697

PATIENT
  Age: 69 Year
  Sex: Male

DRUGS (5)
  1. ALDACTONE A [Concomitant]
     Active Substance: SPIRONOLACTONE
     Indication: SINGLE FUNCTIONAL KIDNEY
     Route: 065
  2. ENALAPRIL [Concomitant]
     Active Substance: ENALAPRIL
     Route: 065
  3. XARELTO [Suspect]
     Active Substance: RIVAROXABAN
     Indication: CARDIO-RESPIRATORY ARREST
     Route: 048
     Dates: start: 2017
  4. CILOSTAZOL. [Concomitant]
     Active Substance: CILOSTAZOL
     Route: 065
  5. XARELTO [Suspect]
     Active Substance: RIVAROXABAN
     Indication: CARDIO-RESPIRATORY ARREST
     Route: 048
     Dates: start: 201602

REACTIONS (8)
  - Cataract operation [Unknown]
  - Vein rupture [Not Recovered/Not Resolved]
  - Off label use [Unknown]
  - Vasodilatation [Recovered/Resolved]
  - Vein rupture [Recovered/Resolved]
  - Leg amputation [Unknown]
  - Product use in unapproved indication [Unknown]
  - Conjunctival haemorrhage [Recovered/Resolved]

NARRATIVE: CASE EVENT DATE: 201710
